FAERS Safety Report 11441248 (Version 1)
Quarter: 2015Q3

REPORT INFORMATION
  Report Type: Spontaneous
  Country: US (occurrence: US)
  Receive Date: 20150821
  Receipt Date: 20150821
  Transmission Date: 20151125
  Serious: No
  Sender: FDA-Public Use
  Company Number: US-ELI_LILLY_AND_COMPANY-US200804005077

PATIENT
  Age: 41 Year
  Sex: Female

DRUGS (2)
  1. CYMBALTA [Suspect]
     Active Substance: DULOXETINE HYDROCHLORIDE
     Indication: NEUROPATHY PERIPHERAL
     Dosage: 30 MG, DAILY (1/D)
     Dates: start: 20080412, end: 20080415
  2. NEURONTIN [Concomitant]
     Active Substance: GABAPENTIN
     Dosage: 300 MG, UNK

REACTIONS (17)
  - Hot flush [Not Recovered/Not Resolved]
  - Abdominal pain upper [Unknown]
  - Groin pain [Not Recovered/Not Resolved]
  - Agitation [Unknown]
  - Formication [Unknown]
  - Drug ineffective [Unknown]
  - Paraesthesia [Unknown]
  - Dry throat [Unknown]
  - Drug withdrawal syndrome [Unknown]
  - Fatigue [Unknown]
  - Mydriasis [Unknown]
  - Muscle twitching [Not Recovered/Not Resolved]
  - Weight decreased [Unknown]
  - Tremor [Unknown]
  - Proctalgia [Not Recovered/Not Resolved]
  - Decreased appetite [Not Recovered/Not Resolved]
  - Insomnia [Unknown]

NARRATIVE: CASE EVENT DATE: 20080415
